FAERS Safety Report 9729811 (Version 2)
Quarter: 2013Q4

REPORT INFORMATION
  Report Type: Spontaneous
  Country: US (occurrence: US)
  Receive Date: 20131204
  Receipt Date: 20131204
  Transmission Date: 20140711
  Serious: No
  Sender: FDA-Public Use
  Company Number: US-GILEAD-2009-0021772

PATIENT
  Sex: Female
  Weight: 77.11 kg

DRUGS (14)
  1. LETAIRIS [Suspect]
     Indication: PULMONARY ARTERIAL HYPERTENSION
     Route: 048
     Dates: start: 20090112
  2. TOPROL XL [Concomitant]
  3. NORVASC [Concomitant]
  4. ASPIRIN [Concomitant]
  5. WELCHOL [Concomitant]
  6. LEVOXYL [Concomitant]
  7. XANAX XR [Concomitant]
  8. CYMBALTA [Concomitant]
  9. SYNVISC [Concomitant]
  10. NEXIUM [Concomitant]
  11. COMPLETE MULTIVITAMIN [Concomitant]
  12. VITAMIN C [Concomitant]
  13. FLAXSEED OIL [Concomitant]
  14. CALCIUM [Concomitant]

REACTIONS (1)
  - Unevaluable event [Unknown]
